FAERS Safety Report 6331602-3 (Version None)
Quarter: 2009Q3

REPORT INFORMATION
  Report Type: 
  Country: None (occurrence: None)
  Receive Date: 20090827
  Receipt Date: 20090817
  Transmission Date: 20100115
  Serious: Yes (Other)
  Sender: FDA-Public Use
  Company Number: PHHY2009GB35011

PATIENT
  Age: 67 Year
  Sex: Female

DRUGS (2)
  1. ZOLEDRONIC ACID [Suspect]
     Indication: OSTEITIS DEFORMANS
  2. PAMIDRONATE DISODIUM [Suspect]
     Indication: OSTEITIS DEFORMANS

REACTIONS (12)
  - DEBRIDEMENT [None]
  - GINGIVAL ERYTHEMA [None]
  - HYPERBARIC OXYGEN THERAPY [None]
  - HYPERCEMENTOSIS [None]
  - IMPAIRED HEALING [None]
  - OSTEITIS [None]
  - OSTEONECROSIS [None]
  - SINUS DISORDER [None]
  - SWELLING [None]
  - TOOTH ABSCESS [None]
  - TOOTH EXTRACTION [None]
  - TOOTHACHE [None]
